FAERS Safety Report 13268913 (Version 1)
Quarter: 2017Q1

REPORT INFORMATION
  Report Type: Spontaneous
  Country: KR (occurrence: KR)
  Receive Date: 20170224
  Receipt Date: 20170224
  Transmission Date: 20170428
  Serious: Yes (Hospitalization, Other)
  Sender: FDA-Public Use
  Company Number: KR-009507513-1702KOR009831

PATIENT
  Age: 70 Year
  Sex: Male
  Weight: 69.2 kg

DRUGS (13)
  1. CISPLAN [Concomitant]
     Active Substance: CISPLATIN
     Indication: TONSIL CANCER
     Dosage: 180 MG, ONCE, CYCLE 1, STRENGTH: 50MG/100ML
     Route: 042
     Dates: start: 20161118, end: 20161118
  2. CENTRUM (MINERALS (UNSPECIFIED) (+) VITAMINS (UNSPECIFIED)) [Concomitant]
     Indication: NUTRITIONAL SUPPLEMENTATION
     Dosage: 1 TABLET, QD
     Route: 048
     Dates: start: 20161117
  3. TWYNSTA [Concomitant]
     Active Substance: AMLODIPINE BESYLATE\TELMISARTAN
     Indication: HYPERTENSION
     Dosage: 1 TABLET, QD
     Route: 048
     Dates: start: 2005, end: 20161124
  4. IRCODON [Concomitant]
     Indication: CANCER PAIN
     Dosage: 5 MG, FOR TIMES A DAY
     Route: 048
     Dates: start: 20161118, end: 20161118
  5. MATRIFEN [Concomitant]
     Active Substance: FENTANYL
     Indication: CANCER PAIN
     Dosage: 12 MICROGRAM (PATCH), QD, STRENGTH: 12/MCG /H 4.2 CM2 . FORMULATION AND ROUTE: PATCH
     Dates: start: 20161119, end: 20161226
  6. ASPIRIN. [Concomitant]
     Active Substance: ASPIRIN
     Indication: HYPERTENSION
     Dosage: 100 MG, QD
     Route: 048
     Dates: start: 2015, end: 20161127
  7. DEXAMETHASONE. [Concomitant]
     Active Substance: DEXAMETHASONE
     Indication: PROPHYLAXIS OF NAUSEA AND VOMITING
     Dosage: 4 MG, BID
     Route: 048
     Dates: start: 20161119, end: 20161121
  8. CRESTOR [Concomitant]
     Active Substance: ROSUVASTATIN CALCIUM
     Indication: HYPERLIPIDAEMIA
     Dosage: 5 MG, QD
     Route: 048
     Dates: start: 2005
  9. DEXAMETHASONE SODIUM PHOSPHATE. [Concomitant]
     Active Substance: DEXAMETHASONE SODIUM PHOSPHATE
     Indication: PROPHYLAXIS OF NAUSEA AND VOMITING
     Dosage: 10 MG, ONCE, STRENGHT: 5MG/ML
     Route: 042
     Dates: start: 20161118, end: 20161118
  10. EMEND (FOSAPREPITANT DIMEGLUMINE) [Suspect]
     Active Substance: FOSAPREPITANT DIMEGLUMINE
     Indication: PROPHYLAXIS OF NAUSEA AND VOMITING
     Dosage: 150 MG, ONCE, CYCLE 1
     Route: 042
     Dates: start: 20161118, end: 20161118
  11. IRCODON [Concomitant]
     Indication: CANCER PAIN
  12. SANCUSO [Concomitant]
     Active Substance: GRANISETRON
     Indication: PROPHYLAXIS OF NAUSEA AND VOMITING
     Dosage: 1 EA (ROUTE REPORTED AS PATCH), QD, STRENGTH: 80.2X66.6 MM2
     Dates: start: 20161117, end: 20161123
  13. MACPERAN [Concomitant]
     Active Substance: METOCLOPRAMIDE HYDROCHLORIDE
     Indication: NAUSEA
     Dosage: 10 MG, ONCE
     Route: 042
     Dates: start: 20161118, end: 20161118

REACTIONS (4)
  - Vomiting [Recovered/Resolved]
  - Nausea [Recovered/Resolved]
  - Head injury [Recovered/Resolved]
  - Diarrhoea [Recovered/Resolved]

NARRATIVE: CASE EVENT DATE: 20161121
